FAERS Safety Report 19662184 (Version 1)
Quarter: 2021Q3

REPORT INFORMATION
  Report Type: Spontaneous
  Country: HR (occurrence: HR)
  Receive Date: 20210805
  Receipt Date: 20210805
  Transmission Date: 20211014
  Serious: Yes (Other)
  Sender: FDA-Public Use
  Company Number: NVSC2021HR172146

PATIENT
  Sex: Female
  Weight: 50 kg

DRUGS (1)
  1. AMYZOL [Suspect]
     Active Substance: AMITRIPTYLINE
     Indication: PRODUCT USED FOR UNKNOWN INDICATION
     Dosage: 1250 MG, QD, POPILA 5 BLISTERA EQUAL TO 50 TBL AMITRIPTILINA OD 25 MG
     Route: 048
     Dates: start: 20210502, end: 20210502

REACTIONS (3)
  - Intentional overdose [Unknown]
  - No adverse event [Unknown]
  - Suicide attempt [Unknown]

NARRATIVE: CASE EVENT DATE: 20210502
